FAERS Safety Report 5047698-5 (Version None)
Quarter: 2006Q2

REPORT INFORMATION
  Report Type: 
  Country: None (occurrence: None)
  Receive Date: 20060601
  Receipt Date: 20060217
  Transmission Date: 20061013
  Serious: No
  Sender: FDA-Public Use
  Company Number: US200602000753

PATIENT
  Age: 59 Year
  Sex: Female
  Weight: 62.6 kg

DRUGS (1)
  1. CYMBALTA [Suspect]
     Indication: ANXIETY
     Dosage: 20 MG, DAILY (1/D)

REACTIONS (8)
  - ANXIETY [None]
  - BLOOD GLUCOSE DECREASED [None]
  - COLD SWEAT [None]
  - DIZZINESS [None]
  - HYPERGLYCAEMIA [None]
  - HYPERVENTILATION [None]
  - NERVOUSNESS [None]
  - TREMOR [None]
